FAERS Safety Report 7521691-2 (Version None)
Quarter: 2011Q2

REPORT INFORMATION
  Report Type: 
  Country: None (occurrence: None)
  Receive Date: 20110603
  Receipt Date: 20110531
  Transmission Date: 20111010
  Serious: Yes (Other)
  Sender: FDA-Public Use
  Company Number: US-AMGEN-USASP2010000193

PATIENT
  Sex: Male

DRUGS (2)
  1. IMMUNOGLOBULINS [Concomitant]
     Dosage: UNK
     Route: 042
     Dates: start: 20080208
  2. NPLATE [Suspect]
     Indication: IDIOPATHIC THROMBOCYTOPENIC PURPURA
     Dates: start: 20090908, end: 20100713

REACTIONS (2)
  - CARDIAC DISORDER [None]
  - T-CELL LYMPHOMA [None]
